FAERS Safety Report 23155534 (Version 2)
Quarter: 2024Q1

REPORT INFORMATION
  Report Type: Spontaneous
  Country: US (occurrence: US)
  Receive Date: 20231107
  Receipt Date: 20240117
  Transmission Date: 20240410
  Serious: No
  Sender: FDA-Public Use
  Company Number: US-SA-SAC20231030000232

PATIENT
  Age: 26 Year
  Sex: Female

DRUGS (2)
  1. DUPIXENT [Suspect]
     Active Substance: DUPILUMAB
     Indication: Dermatitis atopic
     Dosage: 300 MG, QD
     Route: 058
  2. DUPIXENT [Suspect]
     Active Substance: DUPILUMAB
     Dosage: 300 MG, QOW
     Route: 058

REACTIONS (8)
  - Lacrimation increased [Unknown]
  - Skin disorder [Unknown]
  - COVID-19 [Unknown]
  - Dry skin [Unknown]
  - Therapeutic response shortened [Unknown]
  - Dry eye [Unknown]
  - Conjunctivitis allergic [Unknown]
  - Inappropriate schedule of product administration [Unknown]
